FAERS Safety Report 12618300 (Version 2)
Quarter: 2016Q3

REPORT INFORMATION
  Report Type: Report from Study
  Country: BR (occurrence: BR)
  Receive Date: 20160803
  Receipt Date: 20160828
  Transmission Date: 20161109
  Serious: Yes (Hospitalization)
  Sender: FDA-Public Use
  Company Number: PHHY2016BR105141

PATIENT
  Sex: Female

DRUGS (2)
  1. EXJADE [Suspect]
     Active Substance: DEFERASIROX
     Indication: IRON OVERLOAD
     Dosage: 3 DF OF 500 MG, QD
     Route: 065
  2. EXJADE [Suspect]
     Active Substance: DEFERASIROX
     Dosage: 4 DF OF 500 MG, QD
     Route: 065

REACTIONS (6)
  - Xanthopsia [Unknown]
  - Vision blurred [Unknown]
  - Blood glucose increased [Unknown]
  - Gait disturbance [Unknown]
  - Dizziness [Unknown]
  - Diabetes mellitus [Unknown]
